FAERS Safety Report 13647673 (Version 5)
Quarter: 2017Q4

REPORT INFORMATION
  Report Type: Spontaneous
  Country: JP (occurrence: JP)
  Receive Date: 20170613
  Receipt Date: 20171101
  Transmission Date: 20180320
  Serious: Yes (Hospitalization, Other)
  Sender: FDA-Public Use
  Company Number: JP-009507513-1705JPN002208J

PATIENT
  Age: 67 Year
  Sex: Male
  Weight: 60 kg

DRUGS (14)
  1. PACIF [Suspect]
     Active Substance: MORPHINE HYDROCHLORIDE
     Indication: CANCER PAIN
     Dosage: 30 MG, QD
     Route: 048
     Dates: start: 20170516, end: 20170524
  2. TAKECAB [Concomitant]
     Active Substance: VONOPRAZAN FUMURATE
     Indication: PROPHYLAXIS
     Dosage: 10 MG, QD
     Route: 048
     Dates: end: 20170530
  3. OPSO [Suspect]
     Active Substance: MORPHINE HYDROCHLORIDE
     Indication: CANCER PAIN
     Dosage: 5 MG, PRN
     Route: 048
     Dates: start: 20170516, end: 20170524
  4. CALONAL [Suspect]
     Active Substance: ACETAMINOPHEN
     Dosage: 500 MG, PRN
     Route: 048
     Dates: start: 20170527, end: 20170609
  5. NOVAMIN (PROCHLORPERAZINE MALEATE) [Suspect]
     Active Substance: PROCHLORPERAZINE MALEATE
     Indication: PROPHYLAXIS
     Dosage: 5 MG, TID
     Route: 048
     Dates: start: 20170516, end: 20170524
  6. CARVEDILOL. [Concomitant]
     Active Substance: CARVEDILOL
     Dosage: 10 MG, QD
     Route: 048
  7. KEYTRUDA [Suspect]
     Active Substance: PEMBROLIZUMAB
     Indication: LUNG ADENOCARCINOMA
     Dosage: 200 MG, Q3W
     Route: 041
     Dates: start: 20170508, end: 20170508
  8. CALONAL [Suspect]
     Active Substance: ACETAMINOPHEN
     Indication: CANCER PAIN
     Dosage: 500 MG, PRN
     Route: 048
     Dates: end: 20170523
  9. ONETRAM [Concomitant]
     Active Substance: TRAMADOL HYDROCHLORIDE
     Dosage: 100 MG, QD
     Route: 048
  10. LASIX [Concomitant]
     Active Substance: FUROSEMIDE
     Dosage: 20 MG, QD
     Route: 048
  11. TRAMAL [Concomitant]
     Active Substance: TRAMADOL
     Dosage: 25 MG, PRN
     Route: 048
     Dates: end: 20170531
  12. LOXOPROFEN [Suspect]
     Active Substance: LOXOPROFEN
     Indication: CANCER PAIN
     Dosage: 60 MG, TID
     Route: 048
     Dates: end: 20170523
  13. LOXOPROFEN [Suspect]
     Active Substance: LOXOPROFEN
     Dosage: 60 MG, UNK
     Route: 048
     Dates: start: 20170529, end: 20170713
  14. SELARA [Concomitant]
     Active Substance: EPLERENONE
     Dosage: 25 MG, QD
     Route: 048

REACTIONS (9)
  - Neoplasm progression [None]
  - Abnormal behaviour [None]
  - Lacunar infarction [None]
  - Renal disorder [Recovered/Resolved]
  - Encephalopathy [None]
  - Dizziness [None]
  - Altered state of consciousness [Recovered/Resolved]
  - Cancer pain [Recovered/Resolved]
  - Pain [None]

NARRATIVE: CASE EVENT DATE: 20170510
